FAERS Safety Report 7379376-1 (Version None)
Quarter: 2011Q1

REPORT INFORMATION
  Report Type: 
  Country: None (occurrence: None)
  Receive Date: 20110329
  Receipt Date: 20110318
  Transmission Date: 20110831
  Serious: No
  Sender: FDA-Public Use
  Company Number: US-BIOGENIDEC-2011BI010566

PATIENT
  Sex: Female

DRUGS (1)
  1. TYSABRI [Suspect]
     Indication: MULTIPLE SCLEROSIS
     Route: 042
     Dates: start: 20110217

REACTIONS (7)
  - ABDOMINAL DISCOMFORT [None]
  - FATIGUE [None]
  - ARTHRALGIA [None]
  - STRESS [None]
  - MEMORY IMPAIRMENT [None]
  - BACK PAIN [None]
  - VIRAL INFECTION [None]
